FAERS Safety Report 14902957 (Version 1)
Quarter: 2018Q2

REPORT INFORMATION
  Report Type: Spontaneous
  Country: US (occurrence: US)
  Receive Date: 20180516
  Receipt Date: 20180516
  Transmission Date: 20180711
  Serious: No
  Sender: FDA-Public Use
  Company Number: US-SA-2017SA100542

PATIENT
  Age: 49 Year
  Sex: Male

DRUGS (6)
  1. HUMULIN NOS [Concomitant]
     Active Substance: INSULIN HUMAN
     Route: 065
  2. SOLOSTAR [Suspect]
     Active Substance: DEVICE
     Indication: TYPE 2 DIABETES MELLITUS
     Dates: start: 2007
  3. AFREZZA [Concomitant]
     Active Substance: INSULIN HUMAN
     Route: 065
  4. LANTUS SOLOSTAR [Suspect]
     Active Substance: INSULIN GLARGINE
     Indication: TYPE 2 DIABETES MELLITUS
     Dosage: 20-25 UNITS
     Route: 051
     Dates: start: 2007
  5. SOLOSTAR [Suspect]
     Active Substance: DEVICE
     Indication: TYPE 2 DIABETES MELLITUS
     Dates: start: 2007
  6. LANTUS SOLOSTAR [Suspect]
     Active Substance: INSULIN GLARGINE
     Indication: TYPE 2 DIABETES MELLITUS
     Dosage: 20-25 UNITS
     Route: 051
     Dates: start: 2007

REACTIONS (4)
  - Blood glucose increased [Unknown]
  - Insomnia [Unknown]
  - Injection site extravasation [Unknown]
  - Device use issue [Unknown]
